FAERS Safety Report 22258630 (Version 1)
Quarter: 2023Q2

REPORT INFORMATION
  Report Type: Spontaneous
  Country: US (occurrence: US)
  Receive Date: 20230427
  Receipt Date: 20230427
  Transmission Date: 20230722
  Serious: Yes (Other)
  Sender: FDA-Public Use
  Company Number: US-ROCHE-3137537

PATIENT
  Sex: Female

DRUGS (2)
  1. CAPECITABINE [Suspect]
     Active Substance: CAPECITABINE
     Indication: Colorectal cancer metastatic
     Dosage: TAKE 3 TABLETS BY MOUTH EVERY MORNING AND TAKE 2 TABLETS BY MOUTH EVERY EVENING 2 WEEK ON, 1 WEEK...
     Route: 048
  2. CAPECITABINE [Suspect]
     Active Substance: CAPECITABINE
     Indication: Hepatic cancer
     Dosage: TAKE 3 TABLETS BY MOUTH EVERY MORNING AND TAKE 2 TABLETS BY MOUTH EVERY EVENING 2 WEEK ON, 1 WEEK...
     Route: 048

REACTIONS (5)
  - Blindness [Unknown]
  - Bedridden [Unknown]
  - Dyspnoea [Unknown]
  - Anxiety [Unknown]
  - Hypoacusis [Unknown]
